FAERS Safety Report 5331972-9 (Version None)
Quarter: 2007Q2

REPORT INFORMATION
  Report Type: 
  Country: None (occurrence: None)
  Receive Date: 20070523
  Receipt Date: 20070516
  Transmission Date: 20071010
  Serious: Yes (Other)
  Sender: FDA-Public Use
  Company Number: US-BAYER-200711557BCC

PATIENT
  Age: 15 Year
  Sex: Female
  Weight: 57 kg

DRUGS (2)
  1. MIDOL EXTENDED RELIEF CAPLETS [Suspect]
     Indication: MENSTRUAL DISORDER
     Dosage: TOTAL DAILY DOSE: 220 MG  UNIT DOSE: 220 MG
     Route: 048
     Dates: start: 20070501, end: 20070501
  2. MIDOL EXTENDED RELIEF CAPLETS [Suspect]
     Dosage: TOTAL DAILY DOSE: 440 MG  UNIT DOSE: 220 MG
     Route: 048
     Dates: start: 20070505, end: 20070505

REACTIONS (4)
  - DIZZINESS [None]
  - GAIT DISTURBANCE [None]
  - METRORRHAGIA [None]
  - SYNCOPE [None]
